FAERS Safety Report 5260797-8 (Version None)
Quarter: 2007Q1

REPORT INFORMATION
  Report Type: 
  Country: None (occurrence: None)
  Receive Date: 20070309
  Receipt Date: 20070228
  Transmission Date: 20070707
  Serious: Yes (Hospitalization, Other)
  Sender: FDA-Public Use
  Company Number: US-JNJFOC-20070300265

PATIENT
  Age: 43 Year
  Sex: Female

DRUGS (5)
  1. PREZISTA [Suspect]
     Indication: HIV INFECTION
     Route: 048
  2. NORVIR [Suspect]
     Indication: HIV INFECTION
     Route: 065
  3. MK0518 [Suspect]
     Indication: HIV INFECTION
     Route: 048
  4. COMBIVIR [Suspect]
     Indication: HIV INFECTION
     Route: 048
  5. VIREAD [Suspect]
     Indication: HIV INFECTION
     Route: 065

REACTIONS (1)
  - ANAEMIA [None]
